FAERS Safety Report 12632523 (Version 2)
Quarter: 2017Q1

REPORT INFORMATION
  Report Type: Report from Study
  Country: CO (occurrence: CO)
  Receive Date: 20160808
  Receipt Date: 20170126
  Transmission Date: 20170428
  Serious: Yes (Hospitalization, Other)
  Sender: FDA-Public Use
  Company Number: PHHY2016CO006212

PATIENT
  Sex: Female
  Weight: 32 kg

DRUGS (3)
  1. EXJADE [Suspect]
     Active Substance: DEFERASIROX
     Indication: SICKLE CELL ANAEMIA
     Dosage: 15 MG/KG, QD (500 MG ONCE DAILY)
     Route: 048
     Dates: end: 201506
  2. FOLIC ACID. [Concomitant]
     Active Substance: FOLIC ACID
     Indication: PRODUCT USED FOR UNKNOWN INDICATION
     Dosage: 1 MG, UNK
     Route: 065
  3. HIDROXIUREA [Concomitant]
     Active Substance: HYDROXYUREA
     Indication: PRODUCT USED FOR UNKNOWN INDICATION
     Dosage: 500 MG, UNK
     Route: 065

REACTIONS (6)
  - Arthralgia [Unknown]
  - Serum ferritin increased [Unknown]
  - Lip pain [Unknown]
  - Yellow skin [Unknown]
  - General physical health deterioration [Unknown]
  - Platelet count decreased [Unknown]
